FAERS Safety Report 4768424-0 (Version None)
Quarter: 2005Q3

REPORT INFORMATION
  Report Type: 
  Country: None (occurrence: None)
  Receive Date: 20050908
  Receipt Date: 20050524
  Transmission Date: 20060218
  Serious: Yes (Other)
  Sender: FDA-Public Use
  Company Number: 2005-0008233

PATIENT
  Age: 51 Year
  Sex: Female
  Weight: 53.0709 kg

DRUGS (6)
  1. TRUVADA [Suspect]
     Indication: ACQUIRED IMMUNODEFICIENCY SYNDROME
     Dosage: 1 DOSAGE FORMS, 1 IN 2 D, ORAL
     Route: 048
     Dates: start: 20050114
  2. SUSTIVA [Concomitant]
  3. BACTRIM DS [Concomitant]
  4. AZITHROMYCIN [Concomitant]
  5. RIFAMATE (RIFINAH) [Concomitant]
  6. VITAMIN B6 [Concomitant]

REACTIONS (1)
  - BLOOD CREATININE INCREASED [None]
